FAERS Safety Report 18263338 (Version 1)
Quarter: 2020Q3

REPORT INFORMATION
  Report Type: Spontaneous
  Country: GB (occurrence: GB)
  Receive Date: 20200914
  Receipt Date: 20200914
  Transmission Date: 20201103
  Serious: Yes (Other)
  Sender: FDA-Public Use
  Company Number: GB-MYLANLABS-2020M1077464

PATIENT
  Age: 88 Year
  Sex: Male

DRUGS (11)
  1. AMLODIPINE [Suspect]
     Active Substance: AMLODIPINE BESYLATE
     Indication: PROSTATE CANCER
     Dosage: UNK
     Route: 065
  2. LISINOPRIL. [Suspect]
     Active Substance: LISINOPRIL
     Indication: PROSTATE CANCER
     Dosage: UNK
     Route: 065
  3. ALLOPURINOL. [Suspect]
     Active Substance: ALLOPURINOL
     Indication: PROSTATE CANCER
     Dosage: UNK
     Route: 065
  4. LISINOPRIL. [Suspect]
     Active Substance: LISINOPRIL
     Indication: PULMONARY EMBOLISM
     Dosage: UNK
  5. STATIN                             /00848101/ [Suspect]
     Active Substance: SIMVASTATIN
     Indication: PROSTATE CANCER
     Dosage: UNK
     Route: 065
  6. ALLOPURINOL. [Suspect]
     Active Substance: ALLOPURINOL
     Indication: PULMONARY EMBOLISM
     Dosage: UNK
  7. AMLODIPINE [Suspect]
     Active Substance: AMLODIPINE BESYLATE
     Indication: PULMONARY EMBOLISM
     Dosage: UNK
  8. LEUPRORELIN [Suspect]
     Active Substance: LEUPROLIDE ACETATE
     Indication: PULMONARY EMBOLISM
     Dosage: UNK
     Route: 065
  9. LEUPRORELIN [Suspect]
     Active Substance: LEUPROLIDE ACETATE
     Indication: PROSTATE CANCER
     Dosage: UNK
  10. STATIN                             /00848101/ [Suspect]
     Active Substance: SIMVASTATIN
     Indication: PULMONARY EMBOLISM
     Dosage: UNK
  11. EDOXABAN [Suspect]
     Active Substance: EDOXABAN TOSYLATE
     Indication: PULMONARY EMBOLISM
     Dosage: UNK
     Route: 065

REACTIONS (3)
  - Lymphadenopathy [Unknown]
  - Hydronephrosis [Unknown]
  - Off label use [Unknown]
